FAERS Safety Report 9051824 (Version 1)
Quarter: 2013Q1

REPORT INFORMATION
  Report Type: Spontaneous
  Country: US (occurrence: US)
  Receive Date: 20130207
  Receipt Date: 20130207
  Transmission Date: 20140127
  Serious: Yes (Hospitalization)
  Sender: FDA-Public Use
  Company Number: US-BAYER-2013-014415

PATIENT
  Age: 36 Year
  Sex: Female

DRUGS (11)
  1. YAZ [Suspect]
  2. LISINOPRIL/HYDROCHLOROTHIAZIDE [Concomitant]
     Dosage: UNK
     Dates: start: 20090427
  3. LEXAPRO [Concomitant]
     Dosage: UNK
     Dates: start: 20090427
  4. VITAMIN C [ASCORBIC ACID] [Concomitant]
     Dosage: UNK
     Dates: start: 20090427
  5. CALTRATE [Concomitant]
     Dosage: UNK
     Dates: start: 20090427
  6. MAGNESIUM [MAGNESIUM] [Concomitant]
     Dosage: UNK
     Dates: start: 20090427
  7. LUNESTA [Concomitant]
     Dosage: UNK
     Dates: start: 20090427
  8. ZEGERID [Concomitant]
     Dosage: UNK
     Dates: start: 20090427
  9. IMITREX [Concomitant]
     Dosage: UNK
     Dates: start: 20090427
  10. BYSTOLIC [Concomitant]
  11. STATIN [Concomitant]

REACTIONS (4)
  - Myocardial infarction [None]
  - Chest pain [None]
  - Joint stiffness [None]
  - Dyspepsia [None]
